FAERS Safety Report 9426861 (Version 1)
Quarter: 2013Q3

REPORT INFORMATION
  Report Type: Spontaneous
  Country: US (occurrence: US)
  Receive Date: 20130730
  Receipt Date: 20130730
  Transmission Date: 20140515
  Serious: No
  Sender: FDA-Public Use
  Company Number: US-SANOFI-AVENTIS-2013SA022530

PATIENT
  Age: 70 Year
  Sex: Male

DRUGS (2)
  1. AMBIEN CR [Suspect]
     Indication: SLEEP DISORDER
     Dosage: FRQUENCY- PM, EXPIRATION DATE 07/2015, TAKEN FROM- YEAR AGO
     Route: 048
     Dates: end: 20130227
  2. LUNESTA [Concomitant]

REACTIONS (4)
  - Insomnia [Not Recovered/Not Resolved]
  - Drug ineffective [Unknown]
  - Product substitution issue [Unknown]
  - Product substitution issue [Unknown]
